FAERS Safety Report 4747977-2 (Version None)
Quarter: 2005Q3

REPORT INFORMATION
  Report Type: 
  Country: None (occurrence: None)
  Receive Date: 20050817
  Receipt Date: 20050817
  Transmission Date: 20060218
  Serious: Yes (Other)
  Sender: FDA-Public Use
  Company Number: None

PATIENT
  Age: 46 Year
  Sex: Male
  Weight: 72.5755 kg

DRUGS (4)
  1. OXYCONTIN [Suspect]
     Indication: INJURY
     Dosage: 1 TAB EVERY 8 HOURS
  2. OXYCONTIN [Suspect]
     Indication: PAIN
     Dosage: 1 TAB EVERY 8 HOURS
  3. ATENOLOL [Concomitant]
  4. VITAMIN B SUPPLEMENT [Concomitant]

REACTIONS (8)
  - ABDOMINAL PAIN UPPER [None]
  - DEPRESSION [None]
  - DRUG EFFECT DECREASED [None]
  - DRUG INEFFECTIVE [None]
  - FEELING JITTERY [None]
  - PHARMACEUTICAL PRODUCT COMPLAINT [None]
  - PHARMACEUTICAL PRODUCT COUNTERFEIT [None]
  - POOR QUALITY DRUG ADMINISTERED [None]
